FAERS Safety Report 26125841 (Version 1)
Quarter: 2025Q4

REPORT INFORMATION
  Report Type: Report from Study
  Country: US (occurrence: US)
  Receive Date: 20251205
  Receipt Date: 20251205
  Transmission Date: 20260117
  Serious: No
  Sender: MALLINCKRODT
  Company Number: US-MALLINCKRODT-MNK202507398

PATIENT
  Sex: Male

DRUGS (1)
  1. CORTICOTROPIN [Suspect]
     Active Substance: CORTICOTROPIN
     Indication: Focal segmental glomerulosclerosis
     Dosage: UNKNOWN

REACTIONS (6)
  - Obsessive-compulsive disorder [Unknown]
  - Brain fog [Unknown]
  - Chills [Unknown]
  - Hot flush [Unknown]
  - Logorrhoea [Unknown]
  - Emotional disorder [Unknown]
